FAERS Safety Report 25523692 (Version 1)
Quarter: 2025Q3

REPORT INFORMATION
  Report Type: Spontaneous
  Country: US (occurrence: None)
  Receive Date: 20250703
  Receipt Date: 20250703
  Transmission Date: 20251021
  Serious: Yes (Other)
  Sender: FDA-CTU
  Company Number: None

PATIENT
  Age: 50 Year
  Sex: Male

DRUGS (1)
  1. BIMZELX [Suspect]
     Active Substance: BIMEKIZUMAB-BKZX
     Dates: start: 20250501, end: 20250703

REACTIONS (3)
  - Adverse drug reaction [None]
  - Drug ineffective [None]
  - Candida infection [None]

NARRATIVE: CASE EVENT DATE: 20250702
